FAERS Safety Report 9053293 (Version 1)
Quarter: 2013Q1

REPORT INFORMATION
  Report Type: Spontaneous
  Country: US (occurrence: US)
  Receive Date: 20130207
  Receipt Date: 20130207
  Transmission Date: 20140127
  Serious: Yes (Other)
  Sender: FDA-Public Use
  Company Number: US-B.I. PHARMACEUTICALS,INC./RIDGEFIELD-2013-BI-03055BP

PATIENT
  Sex: Male

DRUGS (3)
  1. FLOMAX CAPSULES [Suspect]
  2. VIAGRA [Suspect]
     Dosage: 100 MG
  3. CARDURA [Concomitant]
     Dosage: 8 MG
     Route: 048

REACTIONS (2)
  - Prostate cancer [Unknown]
  - Eczema [Unknown]
